FAERS Safety Report 8558528 (Version 5)
Quarter: 2013Q2

REPORT INFORMATION
  Report Type: Report from Study
  Country: US (occurrence: US)
  Receive Date: 20120511
  Receipt Date: 20130503
  Transmission Date: 20140414
  Serious: Yes (Other)
  Sender: FDA-Public Use
  Company Number: US-ABBOTT-12P-163-0932547-00

PATIENT
  Sex: Female
  Weight: 83.99 kg

DRUGS (20)
  1. HUMIRA 40 MG/0.8 ML PEN [Suspect]
     Indication: ANKYLOSING SPONDYLITIS
     Route: 058
     Dates: start: 2007, end: 200902
  2. HUMIRA 40 MG/0.8 ML PEN [Suspect]
     Route: 058
     Dates: start: 200907, end: 201102
  3. HUMIRA 40 MG/0.8 ML PEN [Suspect]
     Route: 058
     Dates: start: 201107, end: 201111
  4. HUMIRA 40 MG/0.8 ML PEN [Suspect]
     Route: 058
     Dates: start: 20120503, end: 201212
  5. PREDNISONE [Suspect]
     Indication: ANKYLOSING SPONDYLITIS
     Dosage: 15MG ONCE DAY, 10MG NEXT DAY, ALTERNATING
     Route: 048
     Dates: end: 201204
  6. PREDNISONE [Suspect]
     Dosage: 15MG ONCE DAY, 10MG NEXT DAY, ALTERNATING
     Route: 048
     Dates: start: 201204
  7. VICODIN ES [Concomitant]
     Indication: PRODUCT USED FOR UNKNOWN INDICATION
  8. FROVA [Concomitant]
     Indication: HEADACHE
  9. VOLTAREN [Concomitant]
     Indication: PRODUCT USED FOR UNKNOWN INDICATION
  10. XYZAL [Concomitant]
     Indication: HYPERSENSITIVITY
  11. VERAPAMIL [Concomitant]
     Indication: BLOOD PRESSURE ABNORMAL
  12. TOPROL [Concomitant]
     Indication: PRODUCT USED FOR UNKNOWN INDICATION
  13. SYNTHROID [Concomitant]
     Indication: THYROID DISORDER
  14. SYNTHROID [Concomitant]
     Indication: HYPOMETABOLISM
  15. PREMARIN [Concomitant]
     Indication: PRODUCT USED FOR UNKNOWN INDICATION
  16. PROVERA [Concomitant]
     Indication: PRODUCT USED FOR UNKNOWN INDICATION
     Dosage: FOR ONLY HALF THE MONTH EACH MONTH
  17. LASIX [Concomitant]
     Indication: BLOOD PRESSURE ABNORMAL
  18. ACIPHEX [Concomitant]
     Indication: PROPHYLAXIS
  19. WELLBUTRIN XR [Concomitant]
     Indication: PRODUCT USED FOR UNKNOWN INDICATION
  20. PAMELOR [Concomitant]
     Indication: DEPRESSION

REACTIONS (18)
  - Glaucoma [Not Recovered/Not Resolved]
  - Optic nerve injury [Unknown]
  - Cataract [Recovered/Resolved]
  - Migraine [Unknown]
  - Mobility decreased [Unknown]
  - Gait disturbance [Not Recovered/Not Resolved]
  - Muscle spasms [Unknown]
  - Spinal osteoarthritis [Recovering/Resolving]
  - Osteoarthritis [Not Recovered/Not Resolved]
  - Incorrect route of drug administration [Not Recovered/Not Resolved]
  - General physical health deterioration [Unknown]
  - Injection site pain [Not Recovered/Not Resolved]
  - Influenza [Recovered/Resolved]
  - Injection site pain [Unknown]
  - Ankylosing spondylitis [Unknown]
  - Pain [Unknown]
  - Arthritis [Not Recovered/Not Resolved]
  - Drug ineffective [Unknown]
